FAERS Safety Report 15275494 (Version 2)
Quarter: 2018Q4

REPORT INFORMATION
  Report Type: Spontaneous
  Country: US (occurrence: US)
  Receive Date: 20180814
  Receipt Date: 20180817
  Transmission Date: 20190204
  Serious: Yes (Other)
  Sender: FDA-Public Use
  Company Number: US-TEVA-2018-US-944336

PATIENT
  Sex: Male

DRUGS (1)
  1. BETHANECHOL [Suspect]
     Active Substance: BETHANECHOL
     Route: 065

REACTIONS (3)
  - Product storage error [Unknown]
  - Product physical issue [Unknown]
  - Arteriosclerosis [Unknown]
